FAERS Safety Report 9331330 (Version 3)
Quarter: 2013Q3

REPORT INFORMATION
  Report Type: Spontaneous
  Country: US (occurrence: US)
  Receive Date: 20130605
  Receipt Date: 20130704
  Transmission Date: 20140515
  Serious: Yes (Other)
  Sender: FDA-Public Use
  Company Number: US-THROMBOGENICS NV-JET-2013-084

PATIENT
  Sex: 0

DRUGS (1)
  1. JETREA [Suspect]
     Indication: PRODUCT USED FOR UNKNOWN INDICATION
     Dosage: 0.125 MG, ONE TIME DOSE
     Route: 031
     Dates: start: 20130412, end: 20130412

REACTIONS (3)
  - Photopsia [Recovered/Resolved]
  - Chromatopsia [Recovered/Resolved]
  - Chorioretinopathy [Recovering/Resolving]
